FAERS Safety Report 7986068-4 (Version None)
Quarter: 2011Q4

REPORT INFORMATION
  Report Type: 
  Country: None (occurrence: None)
  Receive Date: 20111216
  Receipt Date: 20110118
  Transmission Date: 20120403
  Serious: No
  Sender: FDA-Public Use
  Company Number: US-BRISTOL-MYERS SQUIBB COMPANY-15491368

PATIENT
  Age: 52 Year
  Sex: Male

DRUGS (1)
  1. ABILIFY [Suspect]
     Indication: ANXIETY
     Dosage: ABILIFY TAKEN FOR 10 TO 11 MONTHS.
     Dates: end: 20101223

REACTIONS (1)
  - RESTLESS LEGS SYNDROME [None]
